FAERS Safety Report 15163374 (Version 1)
Quarter: 2018Q3

REPORT INFORMATION
  Report Type: Spontaneous
  Country: US (occurrence: US)
  Receive Date: 20180719
  Receipt Date: 20180719
  Transmission Date: 20181010
  Serious: Yes (Hospitalization, Other)
  Sender: FDA-Public Use
  Company Number: US-INGENUS PHARMACEUTICALS NJ, LLC-ING201807-000689

PATIENT
  Age: 26 Year
  Sex: Female

DRUGS (7)
  1. PROPOFOL. [Concomitant]
     Active Substance: PROPOFOL
  2. CARISOPRODOL, ASPIRIN AND CODEINE PHOSPHATE [Suspect]
     Active Substance: ASPIRIN\CARISOPRODOL\CODEINE PHOSPHATE
  3. ACETAMINOPHEN. [Suspect]
     Active Substance: ACETAMINOPHEN
  4. BETAMETHASONE. [Concomitant]
     Active Substance: BETAMETHASONE
     Dosage: INITIATED 1 DAY PRIOR TO DELIVERY, WITH THE SECOND DOSE GIVEN 3 HOURS BEFORE DELIVERY
  5. SODIUM BICARBONATE. [Concomitant]
     Active Substance: SODIUM BICARBONATE
  6. QUETIAPINE. [Suspect]
     Active Substance: QUETIAPINE
  7. VITAMINS [Suspect]
     Active Substance: VITAMINS

REACTIONS (8)
  - Suicide attempt [Recovered/Resolved]
  - Loss of consciousness [Recovered/Resolved]
  - Endotracheal intubation [Recovered/Resolved]
  - Toxicity to various agents [Recovered/Resolved]
  - Drug level increased [Recovered/Resolved]
  - Intentional overdose [Recovered/Resolved]
  - Respiratory failure [Recovered/Resolved]
  - Exposure during pregnancy [Unknown]
